FAERS Safety Report 14972484 (Version 3)
Quarter: 2024Q3

REPORT INFORMATION
  Report Type: Report from Study
  Country: ES (occurrence: ES)
  Receive Date: 20180605
  Receipt Date: 20240724
  Transmission Date: 20241017
  Serious: Yes (Other)
  Sender: AMGEN
  Company Number: ES-KYOWAKIRIN-2018BKK001261

PATIENT
  Age: 78 Year
  Sex: Male

DRUGS (12)
  1. DENOSUMAB [Suspect]
     Active Substance: DENOSUMAB
     Indication: Lung neoplasm malignant
     Dosage: UNKNOWN, EVERY 28 DAYS
     Route: 065
     Dates: start: 201801
  2. DENOSUMAB [Suspect]
     Active Substance: DENOSUMAB
     Indication: Lung neoplasm malignant
  3. DEXAMETHASONE [Suspect]
     Active Substance: DEXAMETHASONE
     Indication: Pain
     Dosage: 4 MCG, EVERY 12 HOURS
     Route: 065
     Dates: start: 201804
  4. DEXAMETHASONE [Suspect]
     Active Substance: DEXAMETHASONE
     Dosage: 4 MILLIGRAM, EVERY 12 HRS
     Route: 065
     Dates: start: 2018
  5. FENTANYL [Suspect]
     Active Substance: FENTANYL\FENTANYL CITRATE
     Indication: Pain
     Dosage: 150 MICROGRAM, EVERY 3 DAYS
     Route: 065
     Dates: start: 201804
  6. FENTANYL [Suspect]
     Active Substance: FENTANYL\FENTANYL CITRATE
     Indication: Breakthrough pain
     Dosage: 4 MCG, EVERY 72 HOURS
     Route: 065
     Dates: start: 201804
  7. FENTANYL [Suspect]
     Active Substance: FENTANYL\FENTANYL CITRATE
     Indication: Breakthrough pain
     Dosage: 100 MCG, UNK
     Route: 060
     Dates: start: 2018
  8. FENTANYL [Suspect]
     Active Substance: FENTANYL\FENTANYL CITRATE
     Dosage: 75 MICROGRAM, EVERY 3 DAYS
     Route: 065
  9. FENTANYL [Suspect]
     Active Substance: FENTANYL\FENTANYL CITRATE
     Dosage: 100 MICROGRAM, EVERY 3 DAYS
     Route: 065
     Dates: start: 2018
  10. FENTANYL [Suspect]
     Active Substance: FENTANYL\FENTANYL CITRATE
     Dosage: 200 MCG, UNK
     Route: 060
     Dates: start: 201804
  11. CARBOPLATIN\GEMCITABINE [Suspect]
     Active Substance: CARBOPLATIN\GEMCITABINE
     Indication: Lung neoplasm malignant
     Dosage: UNKNOWN, DAYS 1 AND 8, EVERY 21 DAYS
     Route: 065
     Dates: start: 201801
  12. CARBOPLATIN\GEMCITABINE [Suspect]
     Active Substance: CARBOPLATIN\GEMCITABINE
     Indication: Lung neoplasm malignant

REACTIONS (10)
  - Renal impairment [Unknown]
  - Neutropenia [Unknown]
  - Depressed level of consciousness [Unknown]
  - Anaemia [Unknown]
  - Substance abuse [Unknown]
  - Somnolence [Unknown]
  - Vomiting [Unknown]
  - Overdose [Unknown]
  - Nausea [Unknown]
  - Intentional product misuse [Unknown]

NARRATIVE: CASE EVENT DATE: 20180401
